FAERS Safety Report 24020852 (Version 2)
Quarter: 2024Q3

REPORT INFORMATION
  Report Type: Report from Study
  Country: MX (occurrence: MX)
  Receive Date: 20240627
  Receipt Date: 20240705
  Transmission Date: 20241017
  Serious: Yes (Hospitalization)
  Sender: NOVARTIS
  Company Number: MX-002147023-NVSC2024MX131509

PATIENT
  Sex: Female

DRUGS (2)
  1. TASIGNA [Suspect]
     Active Substance: NILOTINIB
     Indication: Chronic myeloid leukaemia
     Dosage: UNK
     Route: 048
     Dates: start: 20240528
  2. IMATINIB [Suspect]
     Active Substance: IMATINIB
     Indication: Chronic myeloid leukaemia
     Dosage: UNK
     Route: 048

REACTIONS (14)
  - Peripheral swelling [Unknown]
  - Fatigue [Unknown]
  - Body temperature increased [Unknown]
  - Decreased appetite [Unknown]
  - Headache [Unknown]
  - Pain [Recovered/Resolved]
  - Infection [Unknown]
  - Viral infection [Unknown]
  - Malaise [Unknown]
  - Gait inability [Unknown]
  - Peripheral venous disease [Unknown]
  - Discomfort [Unknown]
  - Chills [Unknown]
  - Discouragement [Unknown]
